FAERS Safety Report 24234772 (Version 1)
Quarter: 2024Q3

REPORT INFORMATION
  Report Type: Spontaneous
  Country: US (occurrence: None)
  Receive Date: 20240820
  Receipt Date: 20240820
  Transmission Date: 20241017
  Serious: Yes (Hospitalization, Other)
  Sender: Public
  Company Number: None

PATIENT
  Age: 42 Year
  Sex: Female
  Weight: 68 kg

DRUGS (1)
  1. SODIUM FERRIC GLUCONATE COMPLEX [Suspect]
     Active Substance: SODIUM FERRIC GLUCONATE COMPLEX
     Dosage: OTHER FREQUENCY : ONCE;?
     Route: 042
     Dates: start: 20240809, end: 20240809

REACTIONS (7)
  - Peripheral swelling [None]
  - Skin discolouration [None]
  - Sensory disturbance [None]
  - Burning sensation [None]
  - Urticaria [None]
  - Dry throat [None]
  - Infusion related reaction [None]

NARRATIVE: CASE EVENT DATE: 20240809
